FAERS Safety Report 14702361 (Version 1)
Quarter: 2018Q2

REPORT INFORMATION
  Report Type: Spontaneous
  Country: PL (occurrence: PL)
  Receive Date: 20180401
  Receipt Date: 20180401
  Transmission Date: 20180711
  Serious: Yes (Hospitalization)
  Sender: FDA-Public Use
  Company Number: PHHY2018PL055416

PATIENT
  Age: 48 Year
  Sex: Female

DRUGS (17)
  1. BIOFUROKSYM [Concomitant]
     Active Substance: CEFUROXIME SODIUM
     Indication: PRODUCT USED FOR UNKNOWN INDICATION
     Dosage: 1500 MG, UNK
     Route: 042
     Dates: start: 20160506, end: 20160512
  2. CALCIUM CHLORATUM [Concomitant]
     Indication: PRODUCT USED FOR UNKNOWN INDICATION
     Dosage: 1000/10 MG/ML, UNK
     Route: 042
     Dates: start: 20160506, end: 20160512
  3. GENTAMICIN. [Concomitant]
     Active Substance: GENTAMICIN
     Indication: PRODUCT USED FOR UNKNOWN INDICATION
     Dosage: 40 MG/ML, UNK (INJECTION INTRAMUSCULAR/ INTRAVENOUS)
     Route: 030
     Dates: start: 20160506, end: 20160512
  4. KLIMICIN [Suspect]
     Active Substance: CLINDAMYCIN PHOSPHATE
     Indication: PRODUCT USED FOR UNKNOWN INDICATION
     Dosage: 300 MG/2 ML, UNK (INJECTION INTRAMUSCULAR/ INTRAVENOUS)
     Route: 030
     Dates: start: 20160506, end: 20160512
  5. FUROSEMIDUM [Concomitant]
     Active Substance: FUROSEMIDE
     Indication: PRODUCT USED FOR UNKNOWN INDICATION
     Dosage: 20 MG/2ML, UNK
     Route: 065
     Dates: start: 20160506, end: 20160512
  6. ROQURUM [Concomitant]
     Indication: PRODUCT USED FOR UNKNOWN INDICATION
     Dosage: 100 MG/ML, UNK
     Route: 065
     Dates: start: 20160506, end: 20160512
  7. CORHYDRON [Concomitant]
     Indication: PRODUCT USED FOR UNKNOWN INDICATION
     Dosage: 100 MG, UNK
     Route: 042
     Dates: start: 20160506, end: 20160512
  8. PYRALGINUM [Concomitant]
     Indication: PRODUCT USED FOR UNKNOWN INDICATION
     Dosage: 500 MG, UNK
     Route: 065
     Dates: start: 20160506, end: 20160512
  9. LIGNOCAINUM HYDROCHLORICUM [Concomitant]
     Indication: PRODUCT USED FOR UNKNOWN INDICATION
     Dosage: 10 MG/2ML, UNK (INJECTION INTRAMUSCULAR OR TO THE TISSUE, 1 %)
     Route: 030
     Dates: start: 20160506, end: 20160512
  10. MANNITOL. [Concomitant]
     Active Substance: MANNITOL
     Indication: PRODUCT USED FOR UNKNOWN INDICATION
     Dosage: 200 MG/ML, UNK
     Route: 042
     Dates: start: 20160506, end: 20160512
  11. DEXAK [Concomitant]
     Indication: PRODUCT USED FOR UNKNOWN INDICATION
     Dosage: 0.025 G, UNK
     Route: 065
     Dates: start: 20160506, end: 20160512
  12. AMPICILLIN [Concomitant]
     Active Substance: AMPICILLIN
     Indication: PRODUCT USED FOR UNKNOWN INDICATION
     Dosage: 1000 MG, UNK (INJECTION INTRAMUSCULAR/ INTRAVENOUS)
     Route: 030
     Dates: start: 20160506, end: 20160512
  13. DEXAK [Concomitant]
     Indication: PRODUCT USED FOR UNKNOWN INDICATION
     Dosage: 50 MG/2ML, UNK
     Route: 065
     Dates: start: 20160506, end: 20160512
  14. KETONAL [Concomitant]
     Active Substance: KETOPROFEN
     Indication: PRODUCT USED FOR UNKNOWN INDICATION
     Dosage: 100 MG/2ML, UNK
     Route: 065
     Dates: start: 20160506, end: 20160512
  15. PROPOFOL. [Concomitant]
     Active Substance: PROPOFOL
     Indication: PRODUCT USED FOR UNKNOWN INDICATION
     Dosage: 10 MG, UNK
     Route: 042
     Dates: start: 20160506, end: 20160512
  16. KALIPOZ-PROLONGATUM [Concomitant]
     Active Substance: POTASSIUM CHLORIDE
     Indication: PRODUCT USED FOR UNKNOWN INDICATION
     Dosage: 750 MG (391 MG K+), UNK
     Route: 065
     Dates: start: 20160506, end: 20160512
  17. LIGNOCAINUM HYDROCHLORICUM [Concomitant]
     Dosage: 400 MG, (400 MG/20ML, 2 %)
     Route: 030
     Dates: start: 20160506, end: 20160512

REACTIONS (1)
  - Malaise [Recovered/Resolved]

NARRATIVE: CASE EVENT DATE: 20160511
